FAERS Safety Report 17779209 (Version 1)
Quarter: 2020Q2

REPORT INFORMATION
  Report Type: Report from Study
  Country: JP (occurrence: JP)
  Receive Date: 20200514
  Receipt Date: 20200514
  Transmission Date: 20200714
  Serious: Yes (Other)
  Sender: FDA-Public Use
  Company Number: JP-ROCHE-2598305

PATIENT

DRUGS (1)
  1. BEVACIZUMAB. [Suspect]
     Active Substance: BEVACIZUMAB
     Indication: OVARIAN CANCER RECURRENT
     Route: 042

REACTIONS (13)
  - Hypersensitivity [Unknown]
  - Proteinuria [Unknown]
  - Hypertension [Unknown]
  - Nausea [Unknown]
  - Anaemia [Unknown]
  - Gastrointestinal perforation [Unknown]
  - Thrombocytopenia [Unknown]
  - Gastrointestinal fistula [Unknown]
  - Thrombosis [Unknown]
  - Neutropenia [Unknown]
  - Vomiting [Unknown]
  - Haemorrhage [Unknown]
  - Diarrhoea [Unknown]
